FAERS Safety Report 10493495 (Version 1)
Quarter: 2014Q4

REPORT INFORMATION
  Report Type: Spontaneous
  Country: US (occurrence: US)
  Receive Date: 20141002
  Receipt Date: 20141002
  Transmission Date: 20150528
  Serious: No
  Sender: FDA-Public Use
  Company Number: US-GLAXOSMITHKLINE-A1084848A

PATIENT
  Age: 62 Year
  Sex: Male

DRUGS (10)
  1. VENTOLIN [Suspect]
     Active Substance: ALBUTEROL SULFATE
     Indication: PRODUCT USED FOR UNKNOWN INDICATION
     Route: 055
  2. COMBIVENT RESPIMAT [Concomitant]
     Active Substance: ALBUTEROL SULFATE\IPRATROPIUM BROMIDE
  3. BUSPAR [Concomitant]
     Active Substance: BUSPIRONE HYDROCHLORIDE
  4. AMBIEN [Concomitant]
     Active Substance: ZOLPIDEM TARTRATE
  5. ADVAIR HFA [Suspect]
     Active Substance: FLUTICASONE PROPIONATE\SALMETEROL XINAFOATE
     Indication: ASTHMA
     Dosage: 1PUFF TWICE PER DAY
     Route: 055
     Dates: start: 20140811
  6. NEURONTIN [Concomitant]
     Active Substance: GABAPENTIN
  7. PAXIL [Concomitant]
     Active Substance: PAROXETINE HYDROCHLORIDE
  8. OXYBUTYNIN [Concomitant]
     Active Substance: OXYBUTYNIN
  9. SINGULAIR [Concomitant]
     Active Substance: MONTELUKAST SODIUM
  10. KLONOPIN [Concomitant]
     Active Substance: CLONAZEPAM

REACTIONS (5)
  - Drug administration error [Unknown]
  - Feeling abnormal [Unknown]
  - Treatment noncompliance [Unknown]
  - Headache [Recovered/Resolved]
  - Dizziness [Unknown]

NARRATIVE: CASE EVENT DATE: 201407
